FAERS Safety Report 6886833-0 (Version None)
Quarter: 2010Q3

REPORT INFORMATION
  Report Type: 
  Country: None (occurrence: None)
  Receive Date: 20100730
  Receipt Date: 20100719
  Transmission Date: 20110219
  Serious: Yes (Hospitalization)
  Sender: FDA-Public Use
  Company Number: FR-PFIZER INC-2010089583

PATIENT
  Age: 83 Year
  Sex: Female

DRUGS (6)
  1. ALDACTONE [Suspect]
     Dosage: UNK
     Route: 048
     Dates: start: 20091103, end: 20091114
  2. ROCEPHIN [Suspect]
     Indication: INFECTION
     Dosage: UNK
     Route: 042
     Dates: start: 20091115, end: 20091124
  3. PARACETAMOL [Suspect]
     Dosage: UNK
     Route: 042
     Dates: start: 20091115, end: 20091120
  4. LOVENOX [Suspect]
     Dosage: UNK
     Route: 058
     Dates: start: 20091121, end: 20091124
  5. SALBUTAMOL [Suspect]
     Dosage: UNK
     Route: 002
     Dates: start: 20091119, end: 20091122
  6. LORAZEPAM [Suspect]
     Dosage: UNK
     Route: 048
     Dates: start: 20091101, end: 20091124

REACTIONS (1)
  - THROMBOCYTOPENIC PURPURA [None]
